FAERS Safety Report 16201410 (Version 1)
Quarter: 2019Q2

REPORT INFORMATION
  Report Type: Spontaneous
  Country: US (occurrence: US)
  Receive Date: 20190415
  Receipt Date: 20190415
  Transmission Date: 20190711
  Serious: No
  Sender: FDA-Public Use
  Company Number: None

PATIENT
  Age: 47 Year
  Sex: Female
  Weight: 54.9 kg

DRUGS (1)
  1. TAMSULOSIN [Suspect]
     Active Substance: TAMSULOSIN
     Indication: URETHRAL DILATATION
     Dosage: ?          QUANTITY:1 CAPSULE(S);?
     Route: 048
     Dates: start: 20190404, end: 20190407

REACTIONS (6)
  - Swollen tongue [None]
  - Pharyngeal swelling [None]
  - Dysphagia [None]
  - Oropharyngeal pain [None]
  - Dysphonia [None]
  - Nasopharyngitis [None]

NARRATIVE: CASE EVENT DATE: 20190406
